FAERS Safety Report 5838464-9 (Version None)
Quarter: 2008Q3

REPORT INFORMATION
  Report Type: 
  Country: None (occurrence: None)
  Receive Date: 20080806
  Receipt Date: 20080801
  Transmission Date: 20090109
  Serious: Yes (Death)
  Sender: FDA-Public Use
  Company Number: 163-20785-08080068

PATIENT
  Age: 7 Year
  Sex: Female

DRUGS (1)
  1. THALOMID [Suspect]
     Indication: RENAL CANCER
     Dosage: 200 MG, 4 IN 1 D, ORAL
     Route: 048
     Dates: start: 20080310, end: 20080701

REACTIONS (1)
  - DISEASE PROGRESSION [None]
